FAERS Safety Report 8417443-1 (Version None)
Quarter: 2012Q2

REPORT INFORMATION
  Report Type: 
  Country: None (occurrence: None)
  Receive Date: 20120606
  Receipt Date: 20120403
  Transmission Date: 20120825
  Serious: Yes (Life-Threatening, Hospitalization, Other)
  Sender: FDA-Public Use
  Company Number: PHEH2012US006387

PATIENT
  Sex: Female
  Weight: 88 kg

DRUGS (4)
  1. RITALIN [Suspect]
     Indication: DEPRESSED LEVEL OF CONSCIOUSNESS
  2. REBIF [Suspect]
     Dosage: 3 DF, QW
     Route: 058
     Dates: start: 20111020, end: 20120302
  3. METHADON HYDROCHLORIDE TAB [Suspect]
     Indication: PAIN
  4. KLONOPIN [Concomitant]
     Indication: SLEEP DISORDER

REACTIONS (11)
  - HYPERHIDROSIS [None]
  - VENTRICULAR TACHYCARDIA [None]
  - MUSCULOSKELETAL STIFFNESS [None]
  - HYPOAESTHESIA [None]
  - RESPIRATORY ARREST [None]
  - COLD SWEAT [None]
  - TREMOR [None]
  - LOSS OF CONSCIOUSNESS [None]
  - FEELING HOT [None]
  - MUSCLE CONTRACTIONS INVOLUNTARY [None]
  - INFLUENZA LIKE ILLNESS [None]
